FAERS Safety Report 6375962-6 (Version None)
Quarter: 2009Q3

REPORT INFORMATION
  Report Type: 
  Country: None (occurrence: None)
  Receive Date: 20090924
  Receipt Date: 20090917
  Transmission Date: 20100115
  Serious: Yes (Other)
  Sender: FDA-Public Use
  Company Number: US-GENENTECH-288559

PATIENT
  Sex: Female

DRUGS (6)
  1. XOLAIR [Suspect]
     Indication: DRUG USE FOR UNKNOWN INDICATION
     Dosage: 300 UNK, UNK
  2. ADVAIR DISKUS 100/50 [Concomitant]
     Indication: ASTHMA
  3. SINGULAIR [Concomitant]
     Indication: ASTHMA
     Dosage: 10 MG, QD
     Route: 048
  4. CLARITIN [Concomitant]
     Indication: HYPERSENSITIVITY
     Dosage: 10 MG, QD
     Route: 048
  5. EPIPEN [Concomitant]
     Indication: ANAPHYLACTIC REACTION
     Route: 058
  6. BENADRYL [Concomitant]
     Indication: HYPERSENSITIVITY

REACTIONS (3)
  - COUGH [None]
  - SKIN DISORDER [None]
  - WHEEZING [None]
